FAERS Safety Report 4453732-3 (Version None)
Quarter: 2004Q3

REPORT INFORMATION
  Report Type: 
  Country: None (occurrence: None)
  Receive Date: 20040920
  Receipt Date: 20040907
  Transmission Date: 20050211
  Serious: Yes (Other)
  Sender: FDA-Public Use
  Company Number: 200413324FR

PATIENT
  Age: 67 Year
  Sex: Female

DRUGS (1)
  1. BIRODOGYL [Suspect]
     Indication: TOOTH INFECTION
     Route: 048
     Dates: start: 20040601, end: 20040606

REACTIONS (3)
  - GLOSSITIS [None]
  - HEADACHE [None]
  - URTICARIA [None]
